FAERS Safety Report 5276089-7 (Version None)
Quarter: 2007Q1

REPORT INFORMATION
  Report Type: 
  Country: None (occurrence: None)
  Receive Date: 20070321
  Receipt Date: 20061128
  Transmission Date: 20070707
  Serious: Yes (Hospitalization)
  Sender: FDA-Public Use
  Company Number: 234157K06USA

PATIENT
  Age: 60 Year
  Sex: Male

DRUGS (5)
  1. REBIF [Suspect]
     Indication: MULTIPLE SCLEROSIS
     Dates: start: 20060317, end: 20060501
  2. ALBUTEROL (SALBUTAMOL /00139501/) [Concomitant]
  3. ATROVENT [Concomitant]
  4. AEROBID [Concomitant]
  5. SPIRIVA SPIRIVA (TIOTROPIUM BROMIDE) [Concomitant]

REACTIONS (6)
  - CHRONIC OBSTRUCTIVE PULMONARY DISEASE [None]
  - CONDITION AGGRAVATED [None]
  - DEHYDRATION [None]
  - HYPERSENSITIVITY [None]
  - NAUSEA [None]
  - VOMITING [None]
